FAERS Safety Report 7359483-X (Version None)
Quarter: 2011Q1

REPORT INFORMATION
  Report Type: 
  Country: None (occurrence: None)
  Receive Date: 20110317
  Receipt Date: 20091203
  Transmission Date: 20110831
  Serious: No
  Sender: FDA-Public Use
  Company Number: US-PFIZER INC-2009305517

PATIENT
  Sex: Male

DRUGS (2)
  1. EXFORGE [Suspect]
  2. NORVASC [Suspect]
     Dosage: 10 MG, UNK

REACTIONS (2)
  - BLOOD PRESSURE FLUCTUATION [None]
  - BLOOD PRESSURE DECREASED [None]
